FAERS Safety Report 23642406 (Version 1)
Quarter: 2024Q1

REPORT INFORMATION
  Report Type: Spontaneous
  Country: US (occurrence: US)
  Receive Date: 20240318
  Receipt Date: 20240318
  Transmission Date: 20240410
  Serious: Yes (Death, Other)
  Sender: FDA-Public Use
  Company Number: US-AMGEN-USASP2024052990

PATIENT

DRUGS (4)
  1. EPOETIN ALFA [Suspect]
     Active Substance: ERYTHROPOIETIN
     Indication: Anaemia
     Dosage: UNK
     Route: 065
  2. LUSPATERCEPT [Concomitant]
     Active Substance: LUSPATERCEPT
     Dosage: 1 MILLIGRAM/KILOGRAM 21 DAY CYCLES
     Route: 058
  3. LUSPATERCEPT [Concomitant]
     Active Substance: LUSPATERCEPT
     Dosage: 1.75 MILLIGRAM/KILOGRAM 21 DAY CYCLES
     Route: 058
  4. LUSPATERCEPT [Concomitant]
     Active Substance: LUSPATERCEPT
     Dosage: 1.33 MILLIGRAM/KILOGRAM 21 DAY CYCLES
     Route: 058

REACTIONS (9)
  - Septic shock [Fatal]
  - Pneumonia [Fatal]
  - Haemorrhage intracranial [Fatal]
  - Ischaemic stroke [Fatal]
  - Multiple organ dysfunction syndrome [Fatal]
  - Post procedural haemorrhage [Fatal]
  - Myelofibrosis [Fatal]
  - Renal failure [Fatal]
  - Pneumonitis [Fatal]
